FAERS Safety Report 6610380-4 (Version None)
Quarter: 2010Q1

REPORT INFORMATION
  Report Type: 
  Country: None (occurrence: None)
  Receive Date: 20100302
  Receipt Date: 20100301
  Transmission Date: 20100710
  Serious: Yes (Hospitalization, Other)
  Sender: FDA-Public Use
  Company Number: US-ROXANE LABORATORIES, INC.-2010-RO-00215RO

PATIENT
  Sex: Female

DRUGS (29)
  1. DIGOXIN [Suspect]
     Indication: ATRIAL FIBRILLATION
  2. FUROSEMIDE [Suspect]
  3. ALISKIREN [Suspect]
     Indication: CARDIOVASCULAR DISORDER
     Dates: start: 20080630, end: 20090128
  4. PLACEBO [Suspect]
     Indication: CARDIOVASCULAR DISORDER
     Dates: start: 20080630, end: 20090128
  5. ALLOPURINOL [Concomitant]
  6. CARVEDILOL [Concomitant]
  7. PROTONIX [Concomitant]
  8. DILTIAZEM HCL [Concomitant]
  9. AMITIZA [Concomitant]
  10. ADVAIR DISKUS 100/50 [Concomitant]
  11. HUMALOG [Concomitant]
  12. SIMVASTATIN [Concomitant]
  13. SYSTANE [Concomitant]
  14. HYDROCODONE [Concomitant]
  15. PHENYLEPHRINE [Concomitant]
  16. OXYCODONE AND ASPIRIN [Concomitant]
  17. NITROGLYCERIN [Concomitant]
  18. NITRO-DUR [Concomitant]
  19. AZELASTINE HCL [Concomitant]
  20. LEVOCETIRIZINE DIHYDROCHLORIDE [Concomitant]
  21. ALBUTEROL [Concomitant]
  22. METOPROLOL SUCCINATE [Concomitant]
  23. TRAMADOL HCL [Concomitant]
  24. ASPIRIN [Concomitant]
  25. ALKA-SELTZER [Concomitant]
  26. LANTUS [Concomitant]
  27. DULCOLAX [Concomitant]
  28. TYLENOL-500 [Concomitant]
  29. BUMEX [Concomitant]

REACTIONS (16)
  - ABDOMINAL PAIN [None]
  - ASTHENIA [None]
  - ATRIAL FIBRILLATION [None]
  - CARDIAC FAILURE CONGESTIVE [None]
  - DECREASED APPETITE [None]
  - DIARRHOEA [None]
  - DIZZINESS [None]
  - FLUID OVERLOAD [None]
  - HIP FRACTURE [None]
  - INFECTION [None]
  - LEUKOCYTOSIS [None]
  - NAUSEA [None]
  - PNEUMONIA [None]
  - RENAL FAILURE ACUTE [None]
  - THERAPEUTIC AGENT TOXICITY [None]
  - VOMITING [None]
